FAERS Safety Report 4544500-2 (Version None)
Quarter: 2004Q4

REPORT INFORMATION
  Report Type: 
  Country: None (occurrence: None)
  Receive Date: 20041230
  Receipt Date: 20041221
  Transmission Date: 20050328
  Serious: Yes (Other)
  Sender: FDA-Public Use
  Company Number: US-2004-029874

PATIENT
  Age: 30 Year
  Sex: Female
  Weight: 69.4 kg

DRUGS (1)
  1. TRI-LEVLEN 28(ETHINYLESTRADIOL, LEVONORGESTREL) COATED TABLET [Suspect]
     Indication: ORAL CONTRACEPTION
     Dosage: 1 TAB(S), 1X/DAY, ORAL
     Route: 048
     Dates: start: 19890101, end: 20031201

REACTIONS (1)
  - PREMATURE MENOPAUSE [None]
